FAERS Safety Report 20544907 (Version 5)
Quarter: 2022Q2

REPORT INFORMATION
  Report Type: Report from Study
  Country: US (occurrence: US)
  Receive Date: 20220303
  Receipt Date: 20220509
  Transmission Date: 20220721
  Serious: Yes (Death, Other)
  Sender: FDA-Public Use
  Company Number: US-EXELIXIS-CABO-22049441

PATIENT
  Age: 72 Year
  Sex: Male
  Weight: 76.644 kg

DRUGS (1)
  1. CABOMETYX [Suspect]
     Active Substance: CABOZANTINIB S-MALATE
     Indication: Hepatocellular carcinoma
     Dosage: 40 MG, QD
     Route: 048
     Dates: start: 20220208

REACTIONS (10)
  - Infection [Unknown]
  - Feeding disorder [Unknown]
  - Respiratory disorder [Unknown]
  - Death [Fatal]
  - Oropharyngeal pain [Unknown]
  - Thyroid disorder [Unknown]
  - Pain [Unknown]
  - Fatigue [Unknown]
  - Blood pressure increased [Unknown]
  - COVID-19 [Not Recovered/Not Resolved]

NARRATIVE: CASE EVENT DATE: 20220201
